FAERS Safety Report 9048326 (Version 1)
Quarter: 2013Q1

REPORT INFORMATION
  Report Type: Spontaneous
  Country: US (occurrence: None)
  Receive Date: 20130130
  Receipt Date: 20130130
  Transmission Date: 20140127
  Serious: No
  Sender: FDA-Public Use
  Company Number: None

PATIENT
  Sex: Male
  Weight: 47.7 kg

DRUGS (3)
  1. 5-FLUOROURACIL [Suspect]
  2. LEUCOVORIN CALCIUM [Suspect]
  3. OXALIPLATIN [Suspect]

REACTIONS (10)
  - Fatigue [None]
  - Mucosal inflammation [None]
  - Pain [None]
  - Hypophagia [None]
  - Weight decreased [None]
  - Cachexia [None]
  - Fluid intake reduced [None]
  - Decreased appetite [None]
  - Dehydration [None]
  - Hyponatraemia [None]
